FAERS Safety Report 5648132-4 (Version None)
Quarter: 2008Q1

REPORT INFORMATION
  Report Type: 
  Country: None (occurrence: None)
  Receive Date: 20080229
  Receipt Date: 20080215
  Transmission Date: 20080703
  Serious: Yes (Other)
  Sender: FDA-Public Use
  Company Number: 2008000357

PATIENT
  Age: 44 Year
  Sex: Male

DRUGS (3)
  1. TARCEVA [Suspect]
     Indication: LUNG ADENOCARCINOMA
     Dosage: 150 MG, QD, ORAL
     Route: 048
     Dates: start: 20080111
  2. BEVACIZUMAB(INJECTION FOR INFUSION) [Suspect]
     Indication: LUNG ADENOCARCINOMA
     Dosage: 15 MG/KG, Q21 DAY, INTRAVENOUS
     Route: 042
     Dates: start: 20070412
  3. GEMCITABINE [Concomitant]

REACTIONS (3)
  - DRUG INTERACTION [None]
  - PARALYSIS [None]
  - SENSORY LOSS [None]
